FAERS Safety Report 4873953-5 (Version None)
Quarter: 2006Q1

REPORT INFORMATION
  Report Type: 
  Country: None (occurrence: None)
  Receive Date: 20060103
  Receipt Date: 20060103
  Transmission Date: 20060701
  Serious: Yes (Hospitalization)
  Sender: FDA-Public Use
  Company Number: None

PATIENT
  Age: 64 Year
  Sex: Female
  Weight: 51.7101 kg

DRUGS (3)
  1. GEMZAR [Suspect]
     Indication: PANCREATIC CARCINOMA METASTATIC
     Dosage: 1160 MG WEEKLY IV
     Route: 042
     Dates: start: 20050417, end: 20051214
  2. TAXOTERE [Suspect]
     Indication: PANCREATIC CARCINOMA METASTATIC
     Dosage: 46 MG WEEKLY IV
     Route: 042
     Dates: start: 20050417, end: 20051214
  3. XELODA [Suspect]
     Indication: PANCREATIC CARCINOMA METASTATIC
     Dosage: 500 MG DAILY PO
     Route: 048
     Dates: start: 20050417, end: 20051223

REACTIONS (1)
  - OBSTRUCTION GASTRIC [None]
